FAERS Safety Report 14880768 (Version 2)
Quarter: 2018Q2

REPORT INFORMATION
  Report Type: Spontaneous
  Country: SE (occurrence: SE)
  Receive Date: 20180511
  Receipt Date: 20180531
  Transmission Date: 20180711
  Serious: Yes (Life-Threatening, Hospitalization)
  Sender: FDA-Public Use
  Company Number: SE-GLAXOSMITHKLINE-B0278354A

PATIENT
  Age: 62 Year
  Sex: Female

DRUGS (8)
  1. CIPROXIN [Suspect]
     Active Substance: CIPROFLOXACIN
     Indication: SEPSIS
     Route: 048
     Dates: start: 20011022
  2. FLAGYL [Suspect]
     Active Substance: METRONIDAZOLE\METRONIDAZOLE HYDROCHLORIDE
     Indication: PERITONITIS
  3. VANCOCIN [Suspect]
     Active Substance: VANCOMYCIN HYDROCHLORIDE
     Indication: SEPSIS
     Route: 065
     Dates: end: 20011101
  4. VANCOCIN [Suspect]
     Active Substance: VANCOMYCIN HYDROCHLORIDE
     Indication: PERITONITIS
  5. FLAGYL [Suspect]
     Active Substance: METRONIDAZOLE\METRONIDAZOLE HYDROCHLORIDE
     Indication: SEPSIS
     Dates: end: 20011101
  6. ZINACEF [Suspect]
     Active Substance: CEFUROXIME SODIUM
     Indication: SEPSIS
     Dates: end: 20011101
  7. ZINACEF [Suspect]
     Active Substance: CEFUROXIME SODIUM
     Indication: PERITONITIS
  8. CIPROXIN [Suspect]
     Active Substance: CIPROFLOXACIN
     Indication: PERITONITIS
     Dosage: 1 G, QD
     Route: 048
     Dates: start: 20011022

REACTIONS (1)
  - Liver disorder [Recovered/Resolved]

NARRATIVE: CASE EVENT DATE: 20011101
